FAERS Safety Report 4475073-0 (Version None)
Quarter: 2004Q4

REPORT INFORMATION
  Report Type: 
  Country: None (occurrence: None)
  Receive Date: 20041015
  Receipt Date: 20041006
  Transmission Date: 20050328
  Serious: Yes (Death)
  Sender: FDA-Public Use
  Company Number: US-JNJFOC-20041002254

PATIENT
  Age: 83 Year
  Sex: Female
  Weight: 73.5 kg

DRUGS (13)
  1. REMICADE [Suspect]
     Indication: POLYARTHRITIS
     Route: 042
  2. LEVOXYL [Concomitant]
  3. LASIX [Concomitant]
  4. K-DUR 10 [Concomitant]
  5. AVAPRO [Concomitant]
  6. LESCOL XL [Concomitant]
  7. KLONOPIN [Concomitant]
  8. ASPIRIN [Concomitant]
  9. CARAFATE [Concomitant]
  10. SONATA [Concomitant]
  11. DARVOCET [Concomitant]
  12. DARVOCET [Concomitant]
  13. PROTONIX [Concomitant]

REACTIONS (1)
  - DEATH [None]
